FAERS Safety Report 8316698-1 (Version None)
Quarter: 2012Q2

REPORT INFORMATION
  Report Type: 
  Country: None (occurrence: None)
  Receive Date: 20120425
  Receipt Date: 20120413
  Transmission Date: 20120825
  Serious: Yes (Hospitalization)
  Sender: FDA-Public Use
  Company Number: JPI-P-018850

PATIENT
  Age: 73 Year
  Sex: Male
  Weight: 84.8226 kg

DRUGS (6)
  1. XYREM [Suspect]
     Indication: SLEEP DISORDER
     Dosage: 4;8 GM (2;4 G,. 2 OM 1 D). ORAL
     Route: 048
     Dates: start: 20041126
  2. XYREM [Suspect]
     Indication: NARCOLEPSY
     Dosage: 4;8 GM (2;4 G,. 2 OM 1 D). ORAL
     Route: 048
     Dates: start: 20041126
  3. XYREM [Suspect]
     Indication: SLEEP DISORDER
     Dosage: 4;8 GM (2;4 G,. 2 OM 1 D). ORAL
     Route: 048
     Dates: start: 20061020, end: 20111218
  4. XYREM [Suspect]
     Indication: NARCOLEPSY
     Dosage: 4;8 GM (2;4 G,. 2 OM 1 D). ORAL
     Route: 048
     Dates: start: 20061020, end: 20111218
  5. XYREM [Suspect]
     Indication: SLEEP DISORDER
     Dosage: 4;8 GM (2;4 G,. 2 OM 1 D). ORAL
     Route: 048
     Dates: end: 20061019
  6. XYREM [Suspect]
     Indication: NARCOLEPSY
     Dosage: 4;8 GM (2;4 G,. 2 OM 1 D). ORAL
     Route: 048
     Dates: end: 20061019

REACTIONS (9)
  - HERNIA [None]
  - FATIGUE [None]
  - MUSCLE SPASMS [None]
  - DEHYDRATION [None]
  - PROSTATOMEGALY [None]
  - POLLAKIURIA [None]
  - INTENTIONAL DRUG MISUSE [None]
  - LOSS OF CONTROL OF LEGS [None]
  - MIDDLE INSOMNIA [None]
